FAERS Safety Report 11153097 (Version 2)
Quarter: 2015Q2

REPORT INFORMATION
  Report Type: Report from Study
  Country: FR (occurrence: FR)
  Receive Date: 20150601
  Receipt Date: 20150602
  Transmission Date: 20150821
  Serious: Yes (Hospitalization, Other)
  Sender: FDA-Public Use
  Company Number: PHHY2015FR063154

PATIENT
  Age: 64 Year
  Sex: Male

DRUGS (2)
  1. METHOTREXATE [Suspect]
     Active Substance: METHOTREXATE
     Indication: PSORIASIS
     Dosage: 10 MG, QW
     Route: 048
     Dates: start: 20131118
  2. CICLOSPORIN [Suspect]
     Active Substance: CYCLOSPORINE
     Indication: PSORIASIS
     Dosage: 10 MG, QW
     Route: 048
     Dates: start: 20131118

REACTIONS (17)
  - Eschar [Recovered/Resolved]
  - Postoperative wound infection [Unknown]
  - Urinary tract infection pseudomonal [Unknown]
  - Microcytic anaemia [Recovering/Resolving]
  - Calculus bladder [Unknown]
  - Renal abscess [Unknown]
  - Inflammation [Recovering/Resolving]
  - Staphylococcal bacteraemia [Unknown]
  - Septic shock [Recovering/Resolving]
  - Escherichia urinary tract infection [Unknown]
  - Post procedural discharge [Unknown]
  - Sepsis [Recovering/Resolving]
  - Escherichia urinary tract infection [Recovering/Resolving]
  - Urinary tract infection [Unknown]
  - Pyrexia [Recovering/Resolving]
  - Enterobacter infection [Unknown]
  - Pyelocaliectasis [Unknown]

NARRATIVE: CASE EVENT DATE: 20140118
